FAERS Safety Report 5089752-8 (Version None)
Quarter: 2006Q3

REPORT INFORMATION
  Report Type: 
  Country: None (occurrence: None)
  Receive Date: 20060731
  Receipt Date: 20060302
  Transmission Date: 20061208
  Serious: Yes (Hospitalization, Other)
  Sender: FDA-Public Use
  Company Number: US200603000761

PATIENT
  Age: 69 Year
  Sex: Female

DRUGS (2)
  1. FORTEO [Suspect]
     Indication: SPINAL FRACTURE
     Dates: start: 20050701
  2. FORTEO [Concomitant]

REACTIONS (3)
  - COLITIS [None]
  - DIARRHOEA [None]
  - PNEUMONIA [None]
